FAERS Safety Report 8291577-7 (Version None)
Quarter: 2012Q2

REPORT INFORMATION
  Report Type: 
  Country: None (occurrence: None)
  Receive Date: 20120417
  Receipt Date: 20120404
  Transmission Date: 20120825
  Serious: Yes (Life-Threatening, Hospitalization, Other)
  Sender: FDA-Public Use
  Company Number: US-COVIDIEN/TYCO HEALTHCARE/MALLINCKRODT-T201201422

PATIENT
  Age: 34 Year
  Sex: Female

DRUGS (3)
  1. CHLORAL HYDRATE [Suspect]
     Dosage: UNK
  2. QUETIAPINE FUMARATE [Suspect]
     Dosage: UNK
  3. OXYCODONE/ACETAMINOPHEN [Suspect]
     Dosage: UNK

REACTIONS (4)
  - OVERDOSE [None]
  - SUICIDE ATTEMPT [None]
  - MYELOPATHY [None]
  - QUADRIPLEGIA [None]
